FAERS Safety Report 9120135 (Version 1)
Quarter: 2013Q1

REPORT INFORMATION
  Report Type: Spontaneous
  Country: BR (occurrence: BR)
  Receive Date: 20130226
  Receipt Date: 20130226
  Transmission Date: 20140127
  Serious: Yes (Hospitalization)
  Sender: FDA-Public Use
  Company Number: BR-COVIDIEN/TYCO HEALTHCARE/MALLINCKRODT-T201300927

PATIENT
  Age: 70 Year
  Sex: Female
  Weight: 80 kg

DRUGS (7)
  1. OPTIRAY [Suspect]
     Indication: COMPUTERISED TOMOGRAM
     Dosage: 100 ML, SINGLE
     Route: 042
     Dates: start: 20121007, end: 20121007
  2. DAFORIN [Concomitant]
     Dosage: UNK
  3. ASPIRINE [Concomitant]
     Indication: PROPHYLAXIS
     Dosage: UNK
  4. BENICAR HCT [Concomitant]
     Dosage: UNK
  5. BETADINE                           /00080001/ [Concomitant]
     Dosage: UNK
  6. LEVOID [Concomitant]
     Dosage: UNK
  7. ARTOGLICO [Concomitant]
     Dosage: UNK

REACTIONS (1)
  - Nephropathy [Recovered/Resolved]
